FAERS Safety Report 7969613-4 (Version None)
Quarter: 2011Q4

REPORT INFORMATION
  Report Type: 
  Country: None (occurrence: None)
  Receive Date: 20111212
  Receipt Date: 20111206
  Transmission Date: 20120403
  Serious: Yes (Hospitalization)
  Sender: FDA-Public Use
  Company Number: US-PFIZER INC-2011297766

PATIENT
  Sex: Male

DRUGS (1)
  1. SUTENT [Suspect]
     Indication: RENAL CANCER
     Dosage: 50 MG, 1X/DAY, TAKE ONE CAPSULE EVERY DAY FOR 28 DAYS OFF 14 DAYS
     Route: 048
     Dates: start: 20110916

REACTIONS (3)
  - HYPERCALCAEMIA [None]
  - VOMITING [None]
  - HALLUCINATION [None]
